FAERS Safety Report 20617456 (Version 1)
Quarter: 2022Q1

REPORT INFORMATION
  Report Type: Spontaneous
  Country: US (occurrence: None)
  Receive Date: 20220319
  Receipt Date: 20220319
  Transmission Date: 20220423
  Serious: Yes (Life-Threatening, Hospitalization)
  Sender: FDA-Public Use
  Company Number: None

PATIENT
  Age: 88 Year
  Sex: Female
  Weight: 56.25 kg

DRUGS (1)
  1. ARIMIDEX [Suspect]
     Active Substance: ANASTROZOLE
     Indication: Medication error
     Dosage: FREQUENCY : DAILY;?
     Route: 048

REACTIONS (8)
  - Wrong product administered [None]
  - Asthenia [None]
  - Fatigue [None]
  - Confusional state [None]
  - Decreased appetite [None]
  - Lethargy [None]
  - Hunger [None]
  - Impaired quality of life [None]

NARRATIVE: CASE EVENT DATE: 20220205
